FAERS Safety Report 21274173 (Version 2)
Quarter: 2022Q3

REPORT INFORMATION
  Report Type: Spontaneous
  Country: CA (occurrence: CA)
  Receive Date: 20220831
  Receipt Date: 20220902
  Transmission Date: 20221026
  Serious: Yes (Other)
  Sender: FDA-Public Use
  Company Number: CA-PFIZER INC-PV202200050783

PATIENT
  Age: 58 Year
  Sex: Female

DRUGS (3)
  1. INLYTA [Suspect]
     Active Substance: AXITINIB
     Indication: Metastatic renal cell carcinoma
     Dosage: 5 MG, BID (INSTEAD, PCY PROVIDED 5 MG PILLS AND INSTRUCTED PT TO TAKE 4 TABS OF 5 MG)
     Dates: start: 202106
  2. INLYTA [Suspect]
     Active Substance: AXITINIB
     Dosage: 3 MG, 2X/DAY
     Dates: end: 202206
  3. PEMBROLIZUMAB [Concomitant]
     Active Substance: PEMBROLIZUMAB
     Dosage: UNK

REACTIONS (4)
  - Product prescribing error [Recovered/Resolved]
  - Overdose [Recovered/Resolved]
  - Speech disorder [Unknown]
  - Overdose [Unknown]

NARRATIVE: CASE EVENT DATE: 20210601
